FAERS Safety Report 5125348-7 (Version None)
Quarter: 2006Q4

REPORT INFORMATION
  Report Type: 
  Country: None (occurrence: None)
  Receive Date: 20061011
  Receipt Date: 20060829
  Transmission Date: 20070319
  Serious: Yes (Other)
  Sender: FDA-Public Use
  Company Number: JP-MERCK-0608USA06915

PATIENT
  Age: 78 Year
  Sex: Male

DRUGS (6)
  1. PEPCID [Suspect]
     Route: 048
  2. AMLODIN [Concomitant]
     Route: 048
  3. LOXONIN [Suspect]
     Route: 048
  4. DIART [Concomitant]
     Route: 048
  5. MUCOSOLVAN [Concomitant]
     Route: 048
  6. MUCODYNE [Concomitant]
     Route: 048

REACTIONS (1)
  - HENOCH-SCHONLEIN PURPURA [None]
